FAERS Safety Report 22393910 (Version 1)
Quarter: 2023Q2

REPORT INFORMATION
  Report Type: Report from Study
  Country: US (occurrence: US)
  Receive Date: 20230601
  Receipt Date: 20230601
  Transmission Date: 20230722
  Serious: No
  Sender: FDA-Public Use
  Company Number: US-BIOVITRUM-2023-US-011269

PATIENT
  Age: 17 Year
  Sex: Female

DRUGS (2)
  1. KINERET [Suspect]
     Active Substance: ANAKINRA
     Indication: Autoinflammatory disease
     Dosage: DAILY
     Route: 058
     Dates: start: 202305
  2. REMICADE [Suspect]
     Active Substance: INFLIXIMAB
     Indication: Product used for unknown indication

REACTIONS (2)
  - Intentional product misuse [Unknown]
  - Drug interaction [Unknown]

NARRATIVE: CASE EVENT DATE: 20230501
